FAERS Safety Report 8043644 (Version 5)
Quarter: 2013Q2

REPORT INFORMATION
  Report Type: Report from Study
  Country: CA (occurrence: CA)
  Receive Date: 20110719
  Receipt Date: 20130524
  Transmission Date: 20140414
  Serious: Yes (Hospitalization, Other)
  Sender: FDA-Public Use
  Company Number: CA-ROCHE-788042

PATIENT
  Age: 54 Year
  Sex: Male
  Weight: 67 kg

DRUGS (6)
  1. ACTEMRA [Suspect]
     Indication: RHEUMATOID ARTHRITIS
     Route: 042
     Dates: start: 20100922, end: 20120613
  2. TRAMACET [Concomitant]
  3. FOLIC ACID [Concomitant]
  4. ASA [Concomitant]
     Route: 048
  5. ALENDRONATE [Concomitant]
     Route: 065
     Dates: start: 20120327
  6. PREDNISONE [Concomitant]
     Route: 048

REACTIONS (9)
  - Infection [Not Recovered/Not Resolved]
  - Haematoma infection [Recovered/Resolved]
  - Abdominal pain [Recovered/Resolved]
  - Chest pain [Recovered/Resolved]
  - Nausea [Recovered/Resolved]
  - Headache [Recovered/Resolved]
  - Leukocytosis [Recovered/Resolved]
  - Vasculitis [Not Recovered/Not Resolved]
  - Pain [Recovering/Resolving]
